FAERS Safety Report 9387883 (Version 1)
Quarter: 2013Q3

REPORT INFORMATION
  Report Type: Spontaneous
  Country: FR (occurrence: FR)
  Receive Date: 20130708
  Receipt Date: 20130708
  Transmission Date: 20140515
  Serious: Yes (Other)
  Sender: FDA-Public Use
  Company Number: FR-009507513-1307FRA000994

PATIENT
  Age: 99 Year
  Sex: Female

DRUGS (1)
  1. FOSAVANCE [Suspect]
     Dosage: 1 DF, QW
     Route: 048
     Dates: start: 20110621, end: 20110630

REACTIONS (3)
  - Oedema [Recovered/Resolved]
  - Pyrexia [Recovered/Resolved]
  - Arthralgia [Recovered/Resolved]
